FAERS Safety Report 15943287 (Version 1)
Quarter: 2019Q1

REPORT INFORMATION
  Report Type: Spontaneous
  Country: US (occurrence: US)
  Receive Date: 20190210
  Receipt Date: 20190210
  Transmission Date: 20190417
  Serious: No
  Sender: FDA-Public Use
  Company Number: US-ELI_LILLY_AND_COMPANY-US201902001691

PATIENT

DRUGS (1)
  1. TRULICITY [Suspect]
     Active Substance: DULAGLUTIDE
     Indication: PRODUCT USED FOR UNKNOWN INDICATION
     Dosage: UNK, UNKNOWN
     Route: 065
     Dates: start: 201805

REACTIONS (7)
  - Peripheral swelling [Unknown]
  - Abdominal distension [Unknown]
  - Pain in extremity [Unknown]
  - Gait disturbance [Unknown]
  - Feeding disorder [Unknown]
  - Gastrointestinal pain [Unknown]
  - Abdominal pain upper [Unknown]
